FAERS Safety Report 5146366-9 (Version None)
Quarter: 2006Q4

REPORT INFORMATION
  Report Type: 
  Country: None (occurrence: None)
  Receive Date: 20061102
  Receipt Date: 20061009
  Transmission Date: 20070319
  Serious: Yes (Other)
  Sender: FDA-Public Use
  Company Number: 2006SP004126

PATIENT
  Age: 54 Year
  Sex: Male
  Weight: 109.7705 kg

DRUGS (2)
  1. PEG-INTRON [Suspect]
     Indication: HEPATITIS C
     Dosage: SC
     Route: 058
     Dates: start: 20060516
  2. RIBAVIRIN [Suspect]
     Indication: HEPATITIS C
     Dosage: PO
     Route: 048
     Dates: start: 20060516

REACTIONS (5)
  - DECREASED APPETITE [None]
  - DIARRHOEA [None]
  - RECTAL HAEMORRHAGE [None]
  - VOMITING [None]
  - WEIGHT DECREASED [None]
